FAERS Safety Report 9147206 (Version 1)
Quarter: 2013Q1

REPORT INFORMATION
  Report Type: Spontaneous
  Country: NL (occurrence: NL)
  Receive Date: 20130307
  Receipt Date: 20130307
  Transmission Date: 20140127
  Serious: Yes (Hospitalization)
  Sender: FDA-Public Use
  Company Number: NL-ASTRAZENECA-2013SE13111

PATIENT
  Age: 30 Year
  Sex: Female
  Weight: 120 kg

DRUGS (3)
  1. SEROQUEL XR [Suspect]
     Indication: MENTAL DISORDER
     Route: 048
     Dates: start: 20130212
  2. SEROQUEL XR [Suspect]
     Indication: MENTAL DISORDER
     Route: 048
  3. CYMBALTA [Concomitant]
     Route: 048
     Dates: start: 2012

REACTIONS (3)
  - Diplegia [Recovered/Resolved]
  - Dysarthria [Recovered/Resolved]
  - Asthenia [Recovered/Resolved]
